FAERS Safety Report 23339625 (Version 1)
Quarter: 2023Q4

REPORT INFORMATION
  Report Type: Spontaneous
  Country: None (occurrence: GB)
  Receive Date: 20231226
  Receipt Date: 20231226
  Transmission Date: 20240110
  Serious: Yes (Other)
  Sender: FDA-Public Use
  Company Number: GB-Breckenridge Pharmaceutical, Inc.-2149753

PATIENT
  Age: 25 Year

DRUGS (3)
  1. DULOXETINE [Suspect]
     Active Substance: DULOXETINE
     Route: 048
  2. FEXOFENADINE [Concomitant]
     Active Substance: FEXOFENADINE HYDROCHLORIDE
  3. MELATONIN [Concomitant]
     Active Substance: MELATONIN

REACTIONS (25)
  - Vision blurred [Recovered/Resolved]
  - Feeling drunk [Recovered/Resolved]
  - Hypoaesthesia [Recovered/Resolved]
  - Pain in extremity [Recovered/Resolved]
  - Hypoaesthesia [Recovered/Resolved]
  - Dyspnoea [Recovered/Resolved]
  - Abdominal pain [Recovered/Resolved]
  - Migraine [Recovered/Resolved]
  - Confusional state [Recovered/Resolved]
  - Lack of spontaneous speech [Recovered/Resolved]
  - Coordination abnormal [Recovered/Resolved]
  - Fatigue [Recovered/Resolved]
  - Fear [Recovered/Resolved]
  - Feeling of body temperature change [Recovered/Resolved]
  - Diarrhoea [Recovered/Resolved]
  - Constipation [Recovered/Resolved]
  - Dry mouth [Recovered/Resolved]
  - Dizziness [Recovered/Resolved]
  - Abdominal discomfort [Recovered/Resolved]
  - Nausea [Recovered/Resolved]
  - Vomiting [Recovered/Resolved]
  - Neuralgia [Recovered/Resolved]
  - Facial spasm [Unknown]
  - Muscle spasms [Unknown]
  - Yawning [Unknown]
